FAERS Safety Report 17002846 (Version 1)
Quarter: 2019Q4

REPORT INFORMATION
  Report Type: Report from Study
  Country: DE (occurrence: DE)
  Receive Date: 20191107
  Receipt Date: 20191107
  Transmission Date: 20200122
  Serious: Yes (Hospitalization)
  Sender: FDA-Public Use
  Company Number: DE-ROCHE-2455812

PATIENT
  Age: 41 Year
  Sex: Female

DRUGS (18)
  1. BLINDED ATEZOLIZUMAB [Suspect]
     Active Substance: ATEZOLIZUMAB
     Dosage: SECOND CYCLE , DAY 1
     Route: 065
     Dates: start: 20190906
  2. BLINDED ATEZOLIZUMAB [Suspect]
     Active Substance: ATEZOLIZUMAB
     Dosage: THIRD CYCLE , DAY 1
     Route: 065
     Dates: start: 20190927
  3. BEVACIZUMAB. [Suspect]
     Active Substance: BEVACIZUMAB
     Dosage: SECOND CYCLE , DAY 1
     Route: 065
     Dates: start: 20190906
  4. GEMCITABINE. [Suspect]
     Active Substance: GEMCITABINE
     Dosage: SECOND CYCLE,DAY 8
     Route: 065
     Dates: start: 20190913
  5. PEGFILGRASTIM [Suspect]
     Active Substance: PEGFILGRASTIM
     Indication: OVARIAN CANCER
     Dosage: SECOND CYCLE, DAY 1
     Route: 065
     Dates: start: 20190906
  6. CARBOPLATIN. [Suspect]
     Active Substance: CARBOPLATIN
     Indication: OVARIAN CANCER
     Dosage: FIRST CYCLE,DAY 1
     Route: 065
     Dates: start: 20190726
  7. CARBOPLATIN. [Suspect]
     Active Substance: CARBOPLATIN
     Dosage: SECOND CYCLE,DAY 1
     Route: 065
     Dates: start: 20190906
  8. GEMCITABINE. [Suspect]
     Active Substance: GEMCITABINE
     Dosage: FIRST CYCLE , DAY 8
     Route: 065
     Dates: start: 20190802
  9. PEGFILGRASTIM [Suspect]
     Active Substance: PEGFILGRASTIM
     Dosage: THIRD CYCLE, DAY 1
     Route: 065
     Dates: start: 20190927
  10. BEVACIZUMAB. [Suspect]
     Active Substance: BEVACIZUMAB
     Dosage: THIRD CYCLE , DAY 1
     Route: 065
     Dates: start: 20190927
  11. GEMCITABINE. [Suspect]
     Active Substance: GEMCITABINE
     Dosage: THIRD CYCLE,DAY 8
     Route: 065
     Dates: start: 20190927
  12. GEMCITABINE. [Suspect]
     Active Substance: GEMCITABINE
     Dosage: SECOND CYCLE,DAY 1
     Route: 065
     Dates: start: 20190906
  13. GEMCITABINE. [Suspect]
     Active Substance: GEMCITABINE
     Indication: OVARIAN CANCER
     Dosage: FIRST CYCLE,DAY 1
     Route: 065
     Dates: start: 20190726
  14. BLINDED ATEZOLIZUMAB [Suspect]
     Active Substance: ATEZOLIZUMAB
     Indication: OVARIAN CANCER
     Dosage: FIRST CYCLE , DAY 1
     Route: 065
     Dates: start: 20190726
  15. BEVACIZUMAB. [Suspect]
     Active Substance: BEVACIZUMAB
     Indication: OVARIAN CANCER
     Dosage: FIRST CYCLE , DAY 1
     Route: 065
     Dates: start: 20190726
  16. CARBOPLATIN. [Suspect]
     Active Substance: CARBOPLATIN
     Dosage: THIRD CYCLE,DAY 1
     Route: 065
     Dates: start: 20190927
  17. GEMCITABINE. [Suspect]
     Active Substance: GEMCITABINE
     Dosage: THIRD CYCLE,DAY 1
     Route: 065
     Dates: start: 20190927
  18. GEMCITABINE. [Suspect]
     Active Substance: GEMCITABINE
     Dosage: THIRD CYCLE,DAY 8
     Route: 065
     Dates: start: 20191004

REACTIONS (1)
  - General physical health deterioration [Unknown]
